FAERS Safety Report 10744053 (Version 1)
Quarter: 2015Q1

REPORT INFORMATION
  Report Type: Spontaneous
  Country: FR (occurrence: None)
  Receive Date: 20150126
  Receipt Date: 20150126
  Transmission Date: 20150721
  Serious: Yes (Hospitalization, Other)
  Sender: FDA-Public Use
  Company Number: ADR-2015-00184

PATIENT
  Age: 73 Year
  Sex: Female

DRUGS (15)
  1. ACTIFED [Suspect]
     Active Substance: PSEUDOEPHEDRINE HYDROCHLORIDE\TRIPROLIDINE HYDROCHLORIDE
     Dosage: TX LESS THAN 5 DAYS/YR
  2. NEXIUM(ESOMEPRAZOLE MAGNESIUM) [Concomitant]
  3. RHINATHIOL 355 [Suspect]
     Active Substance: CARBOCYSTEINE
     Dosage: AT LEAST ONE BOX
  4. BACLOFEN. [Suspect]
     Active Substance: BACLOFEN
     Indication: WEIGHT ABNORMAL
     Dates: start: 2008
  5. NASONEX(MOMETASONE FUROATE) [Concomitant]
  6. TEMESTA(LORAZEPAM) [Concomitant]
  7. HYGROTON(HYGROTON) [Concomitant]
  8. NUROFEN RHUME [Suspect]
     Active Substance: IBUPROFEN\PSEUDOEPHEDRINE HYDROCHLORIDE
     Dosage: FILM-COATED TABLET
  9. ATURGYL [Suspect]
     Active Substance: FENOXAZOLINE HYDROCHLORIDE
     Dosage: AROUND FEB 2011 FOR 4 DAYS
     Route: 045
  10. BACLOFEN. [Suspect]
     Active Substance: BACLOFEN
     Indication: EATING DISORDER
     Dates: start: 2008
  11. HYGROTON [Concomitant]
     Active Substance: CHLORTHALIDONE
  12. MELATONIN(MELATONIN) [Concomitant]
  13. RHINADVIL [Suspect]
     Active Substance: IBUPROFEN\PSEUDOEPHEDRINE HYDROCHLORIDE
  14. RHINOFLUIMUCIL [Suspect]
     Active Substance: ACETYLCYSTEINE\BENZALKONIUM CHLORIDE\TUAMINOHEPTANE SULFATE
     Dosage: PRESCRIBED IN 2009, 2010, AND 2011
     Route: 045
  15. DHEA(PRASTERONE) [Concomitant]

REACTIONS (3)
  - Bronchitis [None]
  - Pulmonary arterial hypertension [None]
  - White blood cell count abnormal [None]
